FAERS Safety Report 15265199 (Version 1)
Quarter: 2018Q3

REPORT INFORMATION
  Report Type: Report from Study
  Country: BE (occurrence: BE)
  Receive Date: 20180810
  Receipt Date: 20180810
  Transmission Date: 20181010
  Serious: Yes (Hospitalization, Other)
  Sender: FDA-Public Use
  Company Number: BE-TEVA-2018-BE-937990

PATIENT
  Age: 78 Year
  Sex: Female
  Weight: 81 kg

DRUGS (22)
  1. CARBOPLATIN. [Suspect]
     Active Substance: CARBOPLATIN
     Indication: OVARIAN CANCER
     Dosage: 2 AUC WEEKLY
     Route: 042
     Dates: start: 20151217
  2. PACLITAXEL. [Suspect]
     Active Substance: PACLITAXEL
     Indication: OVARIAN CANCER
     Route: 042
     Dates: start: 20160128
  3. PACLITAXEL. [Suspect]
     Active Substance: PACLITAXEL
     Route: 042
     Dates: start: 20151224
  4. ZOFRAN [Concomitant]
     Active Substance: ONDANSETRON HYDROCHLORIDE
     Indication: INFUSION RELATED REACTION
     Route: 065
     Dates: start: 20151217
  5. PACLITAXEL. [Suspect]
     Active Substance: PACLITAXEL
     Route: 042
     Dates: start: 20151217
  6. BEVACIZUMAB. [Suspect]
     Active Substance: BEVACIZUMAB
     Route: 042
     Dates: start: 20160107
  7. CLEXANE [Concomitant]
     Active Substance: ENOXAPARIN SODIUM
     Route: 065
     Dates: start: 20151207, end: 20151222
  8. DEXAMETHASON [Concomitant]
     Active Substance: DEXAMETHASONE
     Indication: INFUSION RELATED REACTION
     Route: 065
     Dates: start: 20151217
  9. CARBOPLATIN. [Suspect]
     Active Substance: CARBOPLATIN
     Dosage: 1.5 AUC WEEKLY
     Route: 042
     Dates: start: 20160609
  10. PACLITAXEL. [Suspect]
     Active Substance: PACLITAXEL
     Route: 042
     Dates: start: 20160210
  11. CARBOPLATIN. [Suspect]
     Active Substance: CARBOPLATIN
     Dosage: 2 AUC WEEKLY
     Route: 042
     Dates: start: 20160210
  12. LASIX [Concomitant]
     Active Substance: FUROSEMIDE
     Route: 065
     Dates: start: 20151231, end: 20151231
  13. BEVACIZUMAB. [Suspect]
     Active Substance: BEVACIZUMAB
     Route: 042
     Dates: start: 20160128
  14. BEVACIZUMAB. [Suspect]
     Active Substance: BEVACIZUMAB
     Route: 042
     Dates: start: 20160218
  15. ZANTAC [Concomitant]
     Active Substance: RANITIDINE HYDROCHLORIDE
     Indication: INFUSION RELATED REACTION
     Route: 065
     Dates: start: 20151217
  16. CARBOPLATIN. [Suspect]
     Active Substance: CARBOPLATIN
     Dosage: 2 AUC WEEKLY
     Route: 042
     Dates: start: 20160128
  17. PACLITAXEL. [Suspect]
     Active Substance: PACLITAXEL
     Route: 042
     Dates: start: 20160609
  18. BEVACIZUMAB. [Suspect]
     Active Substance: BEVACIZUMAB
     Indication: OVARIAN CANCER
     Route: 042
     Dates: start: 20151217
  19. FORLAX [Concomitant]
     Active Substance: POLYETHYLENE GLYCOL 4000
     Route: 065
     Dates: start: 201512
  20. CARBOPLATIN. [Suspect]
     Active Substance: CARBOPLATIN
     Dosage: 2 AUC WEEKLY
     Route: 042
     Dates: start: 20151224
  21. PACLITAXEL. [Suspect]
     Active Substance: PACLITAXEL
     Route: 042
     Dates: start: 20160121
  22. XYZALL [Concomitant]
     Active Substance: LEVOCETIRIZINE DIHYDROCHLORIDE
     Indication: INFUSION RELATED REACTION
     Route: 065
     Dates: start: 20151217

REACTIONS (7)
  - Haemorrhagic diathesis [Recovered/Resolved]
  - Lymphorrhoea [Recovered/Resolved]
  - Epistaxis [Recovered/Resolved]
  - Staphylococcal infection [Recovered/Resolved]
  - Proteinuria [Unknown]
  - Peripheral sensory neuropathy [Recovered/Resolved]
  - Neutropenia [Recovered/Resolved]

NARRATIVE: CASE EVENT DATE: 20151231
